FAERS Safety Report 21077032 (Version 1)
Quarter: 2022Q3

REPORT INFORMATION
  Report Type: Spontaneous
  Country: US (occurrence: US)
  Receive Date: 20220713
  Receipt Date: 20220713
  Transmission Date: 20221027
  Serious: No
  Sender: FDA-Public Use
  Company Number: US-PFIZER INC-202200889935

PATIENT
  Age: 75 Year
  Sex: Male

DRUGS (1)
  1. ZALEPLON [Suspect]
     Active Substance: ZALEPLON
     Indication: Insomnia
     Dosage: UNK

REACTIONS (2)
  - Illness [Unknown]
  - Drug ineffective [Unknown]

NARRATIVE: CASE EVENT DATE: 20220101
